FAERS Safety Report 11437853 (Version 1)
Quarter: 2015Q3

REPORT INFORMATION
  Report Type: Spontaneous
  Country: IN (occurrence: IN)
  Receive Date: 20150831
  Receipt Date: 20150831
  Transmission Date: 20151125
  Serious: Yes (Hospitalization)
  Sender: FDA-Public Use
  Company Number: IN-IMPAX LABORATORIES, INC-2015-IPXL-00880

PATIENT
  Age: 50 Year
  Sex: Male

DRUGS (4)
  1. BACLOFEN. [Suspect]
     Active Substance: BACLOFEN
     Indication: MUSCLE SPASTICITY
  2. BACLOFEN. [Suspect]
     Active Substance: BACLOFEN
     Indication: INTERVERTEBRAL DISC PROTRUSION
  3. BACLOFEN. [Suspect]
     Active Substance: BACLOFEN
     Indication: QUADRIPARESIS
     Dosage: 50 MG, DAILY
     Route: 048
  4. BACLOFEN. [Suspect]
     Active Substance: BACLOFEN
     Indication: NEUROGENIC BLADDER

REACTIONS (1)
  - Gastrointestinal hypomotility [Recovered/Resolved]
